FAERS Safety Report 8421705-1 (Version None)
Quarter: 2012Q2

REPORT INFORMATION
  Report Type: 
  Country: None (occurrence: None)
  Receive Date: 20120608
  Receipt Date: 20110919
  Transmission Date: 20120825
  Serious: No
  Sender: FDA-Public Use
  Company Number: US-GLAXOSMITHKLINE-A0945160A

PATIENT
  Age: 81 Year
  Sex: Female

DRUGS (2)
  1. ALTABAX [Suspect]
     Indication: ORAL HERPES
     Route: 061
     Dates: start: 20110901, end: 20110901
  2. NO CONCURRENT MEDICATION [Concomitant]

REACTIONS (3)
  - ORAL HERPES [None]
  - OFF LABEL USE [None]
  - DRUG INEFFECTIVE [None]
